FAERS Safety Report 9780034 (Version 2)
Quarter: 2014Q1

REPORT INFORMATION
  Report Type: Report from Study
  Country: US (occurrence: US)
  Receive Date: 20131223
  Receipt Date: 20140106
  Transmission Date: 20141002
  Serious: Yes (Hospitalization, Other)
  Sender: FDA-Public Use
  Company Number: US-BAXTER-2013BAX051856

PATIENT
  Sex: Female
  Weight: 77.11 kg

DRUGS (1)
  1. GAMMAGARD LIQUID [Suspect]
     Indication: IMMUNODEFICIENCY
     Route: 058

REACTIONS (2)
  - Blood sodium decreased [Recovered/Resolved]
  - Osteoarthritis [Recovered/Resolved]
